FAERS Safety Report 9983358 (Version 2)
Quarter: 2019Q4

REPORT INFORMATION
  Report Type: Spontaneous
  Country: US (occurrence: US)
  Receive Date: 20140307
  Receipt Date: 20191104
  Transmission Date: 20200122
  Serious: Yes (Other)
  Sender: FDA-Public Use
  Company Number: US-PFIZER INC-2014063301

PATIENT
  Age: 52 Year
  Sex: Female
  Weight: 73.48 kg

DRUGS (1)
  1. LIPITOR [Suspect]
     Active Substance: ATORVASTATIN CALCIUM
     Indication: BLOOD CHOLESTEROL INCREASED
     Dosage: UNK, 1X/DAY (ONCE A NIGHT)
     Route: 048
     Dates: start: 20040923

REACTIONS (3)
  - Type 2 diabetes mellitus [Unknown]
  - Cardiovascular disorder [Unknown]
  - Visual impairment [Unknown]

NARRATIVE: CASE EVENT DATE: 201001
